FAERS Safety Report 8120595-4 (Version None)
Quarter: 2012Q1

REPORT INFORMATION
  Report Type: 
  Country: None (occurrence: None)
  Receive Date: 20120207
  Receipt Date: 20120127
  Transmission Date: 20120608
  Serious: Yes (Hospitalization, Other)
  Sender: FDA-Public Use
  Company Number: US-BAXTER-2012BH001147

PATIENT
  Sex: Female

DRUGS (1)
  1. DIANEAL [Suspect]
     Indication: PERITONEAL DIALYSIS
     Route: 033
     Dates: start: 20090610

REACTIONS (5)
  - BLOOD CULTURE POSITIVE [None]
  - INFECTED SKIN ULCER [None]
  - PERITONITIS BACTERIAL [None]
  - FUNGAL PERITONITIS [None]
  - ABDOMINAL PAIN [None]
